FAERS Safety Report 4698408-2 (Version None)
Quarter: 2005Q2

REPORT INFORMATION
  Report Type: 
  Country: None (occurrence: None)
  Receive Date: 20050621
  Receipt Date: 20050608
  Transmission Date: 20051028
  Serious: Yes (Death)
  Sender: FDA-Public Use
  Company Number: MK200506-0164-1

PATIENT
  Age: 92 Year
  Sex: Male

DRUGS (1)
  1. OPTIRAY 320 [Suspect]
     Indication: COMPUTERISED TOMOGRAM THORAX
     Dosage: 70 ML, ONE TIME, IV
     Route: 042
     Dates: start: 20050607, end: 20050607

REACTIONS (1)
  - DEATH [None]
